FAERS Safety Report 5020621-5 (Version None)
Quarter: 2006Q2

REPORT INFORMATION
  Report Type: 
  Country: None (occurrence: None)
  Receive Date: 20060607
  Receipt Date: 20060530
  Transmission Date: 20061013
  Serious: Yes (Hospitalization)
  Sender: FDA-Public Use
  Company Number: US-MERCK-0605USA05113

PATIENT
  Age: 73 Year
  Sex: Female

DRUGS (1)
  1. PRINIVIL [Suspect]
     Route: 048
     Dates: end: 20060501

REACTIONS (1)
  - OROPHARYNGEAL SPASM [None]
